FAERS Safety Report 20207128 (Version 1)
Quarter: 2021Q4

REPORT INFORMATION
  Report Type: Spontaneous
  Country: US (occurrence: None)
  Receive Date: 20211219
  Receipt Date: 20211219
  Transmission Date: 20220304
  Serious: Yes (Life-Threatening, Disabling)
  Sender: FDA-Public Use
  Company Number: None

PATIENT
  Age: 75 Year
  Sex: Female
  Weight: 78.75 kg

DRUGS (1)
  1. ASSURED BUG BITE RELIEF [Suspect]
     Active Substance: SODIUM BICARBONATE
     Indication: Arthropod bite
     Dosage: FREQUENCY : AS NEEDED;?
     Route: 061
     Dates: start: 20201101, end: 20201105

REACTIONS (7)
  - Blister [None]
  - Pain [None]
  - Scar [None]
  - Tenderness [None]
  - Burning sensation [None]
  - Nerve injury [None]
  - Feeling abnormal [None]

NARRATIVE: CASE EVENT DATE: 20201105
